FAERS Safety Report 10174564 (Version 1)
Quarter: 2014Q2

REPORT INFORMATION
  Report Type: Spontaneous
  Country: US (occurrence: None)
  Receive Date: 20140416
  Receipt Date: 20140416
  Transmission Date: 20141212
  Serious: Yes (Hospitalization)
  Sender: FDA-Public Use
  Company Number: 163-POMAL-14020175

PATIENT
  Age: 76 Year
  Sex: Male

DRUGS (2)
  1. POMALYST (POMALIDOMIDE) (2 MILLIGRAM, CAPSULES) [Suspect]
     Indication: PLASMA CELL MYELOMA
     Route: 048
     Dates: start: 201305
  2. TRANSFUSION (BLOOD AND RELATED PRODUCTS) (UNKNOWN) [Concomitant]

REACTIONS (2)
  - Sepsis [None]
  - Full blood count decreased [None]
